FAERS Safety Report 4362272-1 (Version None)
Quarter: 2004Q2

REPORT INFORMATION
  Report Type: 
  Country: None (occurrence: None)
  Receive Date: 20040517
  Receipt Date: 20040430
  Transmission Date: 20050107
  Serious: Yes (Death, Hospitalization)
  Sender: FDA-Public Use
  Company Number: 430005M03FRA

PATIENT
  Age: 53 Year
  Sex: Female

DRUGS (3)
  1. NOVANTRONE [Suspect]
     Dosage: 22 MG, 1 IN 1 CYCLE, INTRAVENOUS
     Route: 042
     Dates: start: 19990324, end: 19990602
  2. CYCLOPHOSPHAMIDE [Suspect]
     Dosage: 92 MG, 1 IN 1 CYCLE, INTRAVENOUS
     Route: 042
     Dates: start: 19990324, end: 19990602
  3. FLUOROURACIL [Suspect]
     Dosage: 920 MG, 1 IN 1 CYCLE, INTRAVENOUS
     Route: 042
     Dates: start: 19990324, end: 19990602

REACTIONS (3)
  - ACUTE LYMPHOCYTIC LEUKAEMIA [None]
  - MULTI-ORGAN FAILURE [None]
  - SEPTIC SHOCK [None]
